FAERS Safety Report 7827981-8 (Version None)
Quarter: 2011Q4

REPORT INFORMATION
  Report Type: 
  Country: None (occurrence: None)
  Receive Date: 20111020
  Receipt Date: 20111019
  Transmission Date: 20120403
  Serious: Yes (Hospitalization)
  Sender: FDA-Public Use
  Company Number: US-ACTELION-A-NJ2011-53756

PATIENT

DRUGS (1)
  1. TRACLEER [Suspect]
     Indication: PULMONARY ARTERIAL HYPERTENSION
     Dosage: UNK
     Route: 048
     Dates: start: 20061001

REACTIONS (4)
  - EXTRASKELETAL OSSIFICATION [None]
  - GASTROINTESTINAL TUBE INSERTION [None]
  - TEMPOROMANDIBULAR JOINT SURGERY [None]
  - CHOLECYSTECTOMY [None]
